FAERS Safety Report 20234094 (Version 1)
Quarter: 2021Q4

REPORT INFORMATION
  Report Type: Spontaneous
  Country: US (occurrence: US)
  Receive Date: 20211227
  Receipt Date: 20211227
  Transmission Date: 20220303
  Serious: No
  Sender: FDA-Public Use
  Company Number: US-ELI_LILLY_AND_COMPANY-US202111009153

PATIENT
  Sex: Female

DRUGS (1)
  1. HUMULIN R [Suspect]
     Active Substance: INSULIN HUMAN
     Indication: Type 2 diabetes mellitus
     Dosage: 80 U, DAILY
     Route: 058

REACTIONS (3)
  - Pain [Unknown]
  - Neuropathy peripheral [Unknown]
  - Wrong technique in product usage process [Not Recovered/Not Resolved]
